FAERS Safety Report 17478140 (Version 1)
Quarter: 2020Q1

REPORT INFORMATION
  Report Type: Spontaneous
  Country: KR (occurrence: KR)
  Receive Date: 20200228
  Receipt Date: 20200228
  Transmission Date: 20200409
  Serious: Yes (Hospitalization)
  Sender: FDA-Public Use
  Company Number: KR-EISAI MEDICAL RESEARCH-EC-2020-070670

PATIENT
  Age: 87 Year
  Sex: Male
  Weight: 64 kg

DRUGS (1)
  1. ARICEPT [Suspect]
     Active Substance: DONEPEZIL HYDROCHLORIDE
     Indication: DEMENTIA
     Route: 048
     Dates: start: 20200219, end: 20200219

REACTIONS (6)
  - Oxygen saturation decreased [Recovering/Resolving]
  - Bradycardia [Unknown]
  - Hyperhidrosis [Unknown]
  - Anal incontinence [Unknown]
  - Syncope [Unknown]
  - Shock [Unknown]

NARRATIVE: CASE EVENT DATE: 20200219
